FAERS Safety Report 7844873-9 (Version None)
Quarter: 2011Q4

REPORT INFORMATION
  Report Type: 
  Country: None (occurrence: None)
  Receive Date: 20111025
  Receipt Date: 20111021
  Transmission Date: 20120403
  Serious: Yes (Death)
  Sender: FDA-Public Use
  Company Number: DE-GLAXOSMITHKLINE-D0073050A

PATIENT
  Age: 60 Year
  Sex: Female

DRUGS (4)
  1. TROBALT [Suspect]
     Indication: EPILEPSY
     Route: 048
     Dates: start: 20110101
  2. LEVODOPA [Concomitant]
     Indication: EPILEPSY
     Dosage: 1750MG PER DAY
     Route: 065
  3. VALPROIC ACID [Concomitant]
     Indication: EPILEPSY
     Dosage: 2500MG PER DAY
     Route: 065
  4. TRIMIPRAMINE MALEATE [Concomitant]
     Indication: EPILEPSY
     Dosage: 50MG PER DAY
     Route: 065

REACTIONS (2)
  - CARDIAC DEATH [None]
  - SUDDEN UNEXPLAINED DEATH IN EPILEPSY [None]
